FAERS Safety Report 7042041-4 (Version None)
Quarter: 2010Q4

REPORT INFORMATION
  Report Type: 
  Country: None (occurrence: None)
  Receive Date: 20101013
  Receipt Date: 20100120
  Transmission Date: 20110411
  Serious: No
  Sender: FDA-Public Use
  Company Number: US-ASTRAZENECA-2010SE02673

PATIENT
  Age: 3 Year
  Sex: Female
  Weight: 19.5 kg

DRUGS (6)
  1. SYMBICORT [Suspect]
     Indication: ASTHMA
     Dosage: 80/4.5 UG TWO PUFFS BID
     Route: 055
  2. SYMBICORT [Suspect]
     Dosage: 160/4.5 UG TWO PUFFS BID
     Route: 055
  3. SINGULAIR [Concomitant]
     Indication: ASTHMA
  4. KEPPRA [Concomitant]
     Indication: CONVULSION
  5. PYRIDOXINE HCL [Concomitant]
  6. MELATONIN [Concomitant]
     Indication: SLEEP DISORDER

REACTIONS (3)
  - AFFECTIVE DISORDER [None]
  - AGITATION [None]
  - PSYCHOMOTOR HYPERACTIVITY [None]
